FAERS Safety Report 4871898-8 (Version None)
Quarter: 2005Q4

REPORT INFORMATION
  Report Type: 
  Country: None (occurrence: None)
  Receive Date: 20051230
  Receipt Date: 20051226
  Transmission Date: 20060501
  Serious: Yes (Hospitalization)
  Sender: FDA-Public Use
  Company Number: J081-002-002139

PATIENT
  Age: 82 Year
  Sex: Female

DRUGS (7)
  1. ARICEPT [Suspect]
     Indication: DEMENTIA ALZHEIMER'S TYPE
     Dosage: 3 MG, 1 IN 1 D, ORAL;  5 MG, 1 IN 1 D, ORAL
     Route: 048
     Dates: start: 20050701, end: 20050728
  2. ARICEPT [Suspect]
     Indication: DEMENTIA ALZHEIMER'S TYPE
     Dosage: 3 MG, 1 IN 1 D, ORAL;  5 MG, 1 IN 1 D, ORAL
     Route: 048
     Dates: start: 20050729, end: 20050909
  3. DILTIAZEM HYDROCHLORIDE [Concomitant]
  4. ASPIRIN [Concomitant]
  5. NIVADIL (NILVADIPINE) [Concomitant]
  6. HALCION [Concomitant]
  7. PROCTOSEDYL (HYDROCORTISONE/FRADIOMYCIN SULFATE/DIBUCAINE HYDROCHLORID [Concomitant]

REACTIONS (1)
  - ARRHYTHMIA [None]
